FAERS Safety Report 4375028-0 (Version None)
Quarter: 2004Q2

REPORT INFORMATION
  Report Type: 
  Country: None (occurrence: None)
  Receive Date: 20040604
  Receipt Date: 20040601
  Transmission Date: 20050107
  Serious: Yes (Death)
  Sender: FDA-Public Use
  Company Number: TCI2004M01521

PATIENT
  Age: 89 Year
  Sex: Male

DRUGS (11)
  1. LEUPROLIDE ACETATE [Suspect]
     Indication: PROSTATE CANCER
     Dosage: 11.25 MG (11.25 MG, 1 IN 12 WK, SUBCUTANEOUS
     Route: 058
     Dates: start: 20040107, end: 20040330
  2. BICALUTAMIDE (TABLETS) [Concomitant]
  3. ACETYLSALICYLIC ACID (ENTERIC-COATED TABLET) [Concomitant]
  4. RANITIDINE HYDROCHLORIDE [Concomitant]
  5. TRICHLORMETHIAZIDE (TABLETS) [Concomitant]
  6. MUCOSOLATE L (AMBROXOL HYDROCHLORIDE) (SUSTAINED-RELEASE CAPSULE) [Concomitant]
  7. ALFACALCIDOL (CAPSULES) [Concomitant]
  8. VALSARTAN (TABLETS) [Concomitant]
  9. TULIOBUTEROL HYDROCHLORIDE (POULTICE OR PATCH) [Concomitant]
  10. TAMSULOSIN HYDROCHLORIDE (CAPSULES) [Concomitant]
  11. OXITROPIUM BROMIDE (INHALANT) [Concomitant]

REACTIONS (1)
  - ACUTE RESPIRATORY FAILURE [None]
